FAERS Safety Report 5452637-9 (Version None)
Quarter: 2007Q3

REPORT INFORMATION
  Report Type: 
  Country: None (occurrence: None)
  Receive Date: 20070914
  Receipt Date: 20070912
  Transmission Date: 20080115
  Serious: Yes (Death, Other)
  Sender: FDA-Public Use
  Company Number: US-BRISTOL-MYERS SQUIBB COMPANY-13905187

PATIENT

DRUGS (5)
  1. IFOSFAMIDE [Suspect]
     Indication: SARCOMA
  2. ETOPOSIDE [Suspect]
     Indication: SARCOMA
  3. CYCLOPHOSPHAMIDE [Suspect]
     Indication: SARCOMA
  4. DOXORUBICIN HCL [Suspect]
     Indication: SARCOMA
  5. VINCRISTINE [Suspect]
     Indication: SARCOMA

REACTIONS (7)
  - BONE MARROW FAILURE [None]
  - DEATH [None]
  - DRUG TOXICITY [None]
  - HYPOTENSION [None]
  - MALNUTRITION [None]
  - MUCOSAL INFLAMMATION [None]
  - NEUROPATHY PERIPHERAL [None]
